FAERS Safety Report 9413236 (Version 1)
Quarter: 2013Q3

REPORT INFORMATION
  Report Type: Spontaneous
  Country: CA (occurrence: CA)
  Receive Date: 20130722
  Receipt Date: 20130722
  Transmission Date: 20140515
  Serious: Yes (Other)
  Sender: FDA-Public Use
  Company Number: CA-009507513-1307CAN011078

PATIENT
  Age: 63 Year
  Sex: Male

DRUGS (6)
  1. VICTRELIS [Suspect]
     Indication: HEPATITIS C
     Dosage: UNK
     Route: 065
     Dates: start: 20130521
  2. PEGASYS [Suspect]
     Indication: HEPATITIS C
     Dosage: 180 MICROGRAM, UNK
     Route: 058
     Dates: start: 20130416
  3. RIBAVIRIN [Suspect]
     Indication: HEPATITIS C
     Dosage: 1400 MG, QD
     Route: 065
     Dates: start: 20130416, end: 20130714
  4. CHOLECALCIFEROL [Concomitant]
  5. DIGESTIVE ENZYMES [Concomitant]
  6. VITAMINS (UNSPECIFIED) [Concomitant]

REACTIONS (3)
  - Memory impairment [Unknown]
  - Psychotic disorder [Unknown]
  - Acne [Recovered/Resolved]
